FAERS Safety Report 5590685-9 (Version None)
Quarter: 2008Q1

REPORT INFORMATION
  Report Type: 
  Country: None (occurrence: None)
  Receive Date: 20080110
  Receipt Date: 20080104
  Transmission Date: 20080703
  Serious: Yes (Hospitalization)
  Sender: FDA-Public Use
  Company Number: A0701786A

PATIENT
  Age: 32 Year
  Sex: Female
  Weight: 68.0396 kg

DRUGS (5)
  1. ASPIRIN + CAFFEINE + SALICYLAMIDE POWDER (ASPIRIN+CAFFEINE+SALICYLA) [Suspect]
     Indication: DRUG USE FOR UNKNOWN INDICATION
     Dosage: ORAL
     Route: 048
  2. FENTANYL [Suspect]
     Indication: BACK PAIN
     Dosage: 100 MCG / EVERY 3 DAYS / TRANSDERMAL
     Route: 062
     Dates: start: 19990101
  3. PROMETHAZINE [Concomitant]
  4. ALPRAZOLAM [Concomitant]
  5. CARISOPRODOL [Concomitant]

REACTIONS (11)
  - AMENORRHOEA [None]
  - ARTHRALGIA [None]
  - BACK PAIN [None]
  - BLOOD POTASSIUM DECREASED [None]
  - DEPRESSION [None]
  - GASTRIC ULCER [None]
  - HEPATIC FAILURE [None]
  - MIGRAINE [None]
  - OSTEOMYELITIS [None]
  - UPPER RESPIRATORY TRACT INFECTION [None]
  - X-RAY OF PELVIS AND HIP ABNORMAL [None]
